FAERS Safety Report 15092739 (Version 4)
Quarter: 2018Q3

REPORT INFORMATION
  Report Type: Spontaneous
  Country: IR (occurrence: IR)
  Receive Date: 20180629
  Receipt Date: 20180917
  Transmission Date: 20181010
  Serious: Yes (Hospitalization, Other)
  Sender: FDA-Public Use
  Company Number: PHHY2018IR025893

PATIENT
  Age: 32 Year
  Sex: Female

DRUGS (2)
  1. PREDNISOLONE. [Suspect]
     Active Substance: PREDNISOLONE
     Indication: PRODUCT USED FOR UNKNOWN INDICATION
     Dosage: 5 MG, QD
     Route: 048
  2. BETAMETHASONE. [Suspect]
     Active Substance: BETAMETHASONE
     Indication: MATERNAL THERAPY TO ENHANCE FOETAL LUNG MATURITY
     Dosage: UNK, QW
     Route: 065

REACTIONS (7)
  - Femoral neck fracture [Recovered/Resolved]
  - Maternal exposure during pregnancy [Unknown]
  - Weight bearing difficulty [Recovered/Resolved]
  - Osteoporosis [Recovering/Resolving]
  - Arthralgia [Recovered/Resolved]
  - Premature delivery [Unknown]
  - Joint range of motion decreased [Recovered/Resolved]
